FAERS Safety Report 8138842-1 (Version None)
Quarter: 2012Q1

REPORT INFORMATION
  Report Type: 
  Country: None (occurrence: None)
  Receive Date: 20120215
  Receipt Date: 20120206
  Transmission Date: 20120608
  Serious: Yes (Hospitalization, Other)
  Sender: FDA-Public Use
  Company Number: US-ELI_LILLY_AND_COMPANY-US201201000833

PATIENT
  Sex: Female
  Weight: 51.701 kg

DRUGS (1)
  1. FORTEO [Suspect]
     Indication: OSTEOPOROSIS
     Dosage: 0.08 ML, QD
     Route: 058
     Dates: start: 20110811

REACTIONS (1)
  - FEMUR FRACTURE [None]
